FAERS Safety Report 4658751-X (Version None)
Quarter: 2005Q2

REPORT INFORMATION
  Report Type: 
  Country: None (occurrence: None)
  Receive Date: 20050509
  Receipt Date: 20050426
  Transmission Date: 20051028
  Serious: Yes (Other)
  Sender: FDA-Public Use
  Company Number: 2005-01465

PATIENT
  Sex: Male

DRUGS (5)
  1. METOPROLOL (WATSON LABORATORIES) (METOPROLOL TARTRATE)TABLET [Suspect]
     Indication: CARDIAC DISORDER
  2. METOPROLOL (WATSON LABORATORIES) (METOPROLOL TARTRATE)TABLET [Suspect]
     Indication: POSTOPERATIVE CARE
  3. METOPROLOL (WATSON LABORATORIES) (METOPROLOL TARTRATE)TABLET [Suspect]
     Indication: PROPHYLAXIS
  4. ATIVAN [Suspect]
  5. HALDOL [Suspect]

REACTIONS (3)
  - CONFUSIONAL STATE [None]
  - CONVULSION [None]
  - NEUROLOGICAL SYMPTOM [None]
